FAERS Safety Report 18253795 (Version 4)
Quarter: 2020Q3

REPORT INFORMATION
  Report Type: Spontaneous
  Country: BR (occurrence: BR)
  Receive Date: 20200910
  Receipt Date: 20200924
  Transmission Date: 20201103
  Serious: Yes (Other)
  Sender: FDA-Public Use
  Company Number: BR-PFIZER INC-2015340699

PATIENT
  Age: 65 Year
  Sex: Female

DRUGS (7)
  1. NATRILIX [INDAPAMIDE] [Concomitant]
     Dosage: UNK
  2. OLMETEC [Suspect]
     Active Substance: OLMESARTAN MEDOXOMIL
     Dosage: 40 MG
     Dates: end: 20200909
  3. CAPTOPRIL. [Concomitant]
     Active Substance: CAPTOPRIL
     Indication: HYPERTENSION
     Dosage: UNK
  4. CONCOR [Concomitant]
     Active Substance: BISOPROLOL FUMARATE
     Dosage: UNK
  5. OLMETEC [Suspect]
     Active Substance: OLMESARTAN MEDOXOMIL
     Indication: BLOOD PRESSURE INADEQUATELY CONTROLLED
     Dosage: 20 MG
  6. AMLODIPINE BESILATE [Suspect]
     Active Substance: AMLODIPINE BESYLATE
     Indication: BLOOD PRESSURE INADEQUATELY CONTROLLED
     Dosage: UNK
  7. BICONCOR [Suspect]
     Active Substance: BISOPROLOL FUMARATE\HYDROCHLOROTHIAZIDE
     Indication: BLOOD PRESSURE INADEQUATELY CONTROLLED
     Dosage: UNK

REACTIONS (17)
  - Cataract [Unknown]
  - Hyperthyroidism [Unknown]
  - Drug ineffective [Unknown]
  - Visual impairment [Not Recovered/Not Resolved]
  - Psoriasis [Unknown]
  - Swelling of eyelid [Unknown]
  - Asthenia [Unknown]
  - Tachycardia [Unknown]
  - Retinal tear [Unknown]
  - Autoimmune thyroiditis [Unknown]
  - Varicose vein [Unknown]
  - Weight decreased [Unknown]
  - Hypothyroidism [Unknown]
  - Hypoaesthesia [Unknown]
  - Swelling face [Unknown]
  - Peripheral swelling [Unknown]
  - Rheumatoid arthritis [Unknown]

NARRATIVE: CASE EVENT DATE: 2013
